FAERS Safety Report 8600048-7 (Version None)
Quarter: 2012Q3

REPORT INFORMATION
  Report Type: 
  Country: None (occurrence: None)
  Receive Date: 20120816
  Receipt Date: 20110923
  Transmission Date: 20120928
  Serious: No
  Sender: FDA-Public Use
  Company Number: PHEH2011US013203

PATIENT
  Sex: Female

DRUGS (4)
  1. TASIGNA [Suspect]
     Dosage: 400 MG, BID
  2. FISH OIL [Concomitant]
  3. POTASSIUM [Concomitant]
  4. EFFEXOR [Concomitant]
     Dosage: 150 MG, QD

REACTIONS (2)
  - RASH PRURITIC [None]
  - FULL BLOOD COUNT DECREASED [None]
